FAERS Safety Report 7364449-X (Version None)
Quarter: 2011Q1

REPORT INFORMATION
  Report Type: 
  Country: None (occurrence: None)
  Receive Date: 20110321
  Receipt Date: 20110310
  Transmission Date: 20110831
  Serious: Yes (Hospitalization)
  Sender: FDA-Public Use
  Company Number: NO-ASTRAZENECA-2011SE08062

PATIENT
  Age: 72 Year
  Sex: Female

DRUGS (4)
  1. ATACAND HCT [Suspect]
     Route: 048
     Dates: start: 20100501
  2. ATACAND [Suspect]
     Route: 048
     Dates: start: 20100501
  3. ATACAND HCT [Suspect]
     Indication: HYPERTENSION
     Route: 048
  4. LEVOTHYROXINE SODIUM [Concomitant]

REACTIONS (6)
  - DIARRHOEA [None]
  - RASH [None]
  - DIZZINESS [None]
  - EYE IRRITATION [None]
  - INCORRECT DOSE ADMINISTERED [None]
  - PHOTOSENSITIVITY REACTION [None]
